FAERS Safety Report 9112913 (Version 18)
Quarter: 2014Q3

REPORT INFORMATION
  Report Type: Report from Study
  Country: CA (occurrence: CA)
  Receive Date: 20130115
  Receipt Date: 20140923
  Transmission Date: 20150326
  Serious: Yes (Death, Hospitalization, Other)
  Sender: FDA-Public Use
  Company Number: CA-INCYTE CORPORATION-2012IN002466

PATIENT
  Age: 63 Year
  Sex: Female

DRUGS (17)
  1. JAKAFI [Suspect]
     Active Substance: RUXOLITINIB
     Indication: MYELOFIBROSIS
     Dosage: 15 MG, BID
     Route: 048
     Dates: start: 20120510
  2. JAKAFI [Suspect]
     Active Substance: RUXOLITINIB
     Dosage: 10 MG, BID
     Route: 065
  3. WARFARIN [Concomitant]
     Active Substance: WARFARIN
     Dosage: 10 MG, QD
     Route: 048
  4. JAKAFI [Suspect]
     Active Substance: RUXOLITINIB
     Dosage: 15 MG, BID
     Route: 048
     Dates: start: 201208
  5. JAKAFI [Suspect]
     Active Substance: RUXOLITINIB
     Dosage: 17.5 MG (10 MG IN THE AM, 7.5 MG PM)
     Route: 048
     Dates: start: 201208
  6. SALINE [Concomitant]
     Active Substance: SODIUM CHLORIDE
     Dosage: UNK UKN, UNK
  7. JAKAFI [Suspect]
     Active Substance: RUXOLITINIB
     Dosage: 15 MG, BD
     Route: 048
     Dates: start: 201206
  8. JAKAFI [Suspect]
     Active Substance: RUXOLITINIB
     Dosage: 15 MG, BID
     Route: 048
  9. WARFARIN [Concomitant]
     Active Substance: WARFARIN
     Dosage: 10 MG, QD
     Route: 048
  10. SALINE [Concomitant]
     Active Substance: SODIUM CHLORIDE
     Dosage: UNK
  11. JAKAFI [Suspect]
     Active Substance: RUXOLITINIB
     Dosage: 25 MG, (15 MG TABLET IN MORNING AND 10 MG IN EVENING)
     Route: 048
     Dates: start: 201208
  12. DIURETICS [Concomitant]
     Active Substance: UNSPECIFIED INGREDIENT
     Dosage: UNK
  13. DIURETICS [Concomitant]
     Active Substance: UNSPECIFIED INGREDIENT
     Dosage: UNK UKN, QD
  14. JAKAFI [Suspect]
     Active Substance: RUXOLITINIB
     Indication: MYELOFIBROSIS
     Dosage: 10 MG, BID
     Route: 048
     Dates: start: 2010
  15. WARFARIN [Concomitant]
     Active Substance: WARFARIN
     Dosage: 10 MG, QD
     Route: 048
  16. JAKAFI [Suspect]
     Active Substance: RUXOLITINIB
     Dosage: 15 MG, QD
     Route: 048
  17. JAKAFI [Suspect]
     Active Substance: RUXOLITINIB
     Dosage: UNK UKN, UNK
     Route: 048
     Dates: start: 20120820

REACTIONS (27)
  - Portal hypertension [Unknown]
  - International normalised ratio fluctuation [Unknown]
  - Incoherent [Unknown]
  - Feeling abnormal [Unknown]
  - Abdominal rigidity [Unknown]
  - Pneumonia [Recovered/Resolved]
  - Splenomegaly [Unknown]
  - Loss of consciousness [Unknown]
  - Haemorrhage [Recovered/Resolved]
  - Liver disorder [Unknown]
  - Hepatic cirrhosis [Unknown]
  - Constipation [Unknown]
  - Infection [Unknown]
  - Cough [Unknown]
  - Full blood count decreased [Unknown]
  - Mesenteric vein thrombosis [Recovering/Resolving]
  - Urinary tract infection [Recovered/Resolved]
  - Fatigue [Unknown]
  - Hepatic encephalopathy [Unknown]
  - Varices oesophageal [Unknown]
  - Pyrexia [Unknown]
  - Cystitis [Unknown]
  - Death [Fatal]
  - Haemoglobin decreased [Recovering/Resolving]
  - Herpes zoster [Recovering/Resolving]
  - Ascites [Recovering/Resolving]
  - Faeces discoloured [Unknown]

NARRATIVE: CASE EVENT DATE: 20121114
